FAERS Safety Report 19038674 (Version 3)
Quarter: 2021Q2

REPORT INFORMATION
  Report Type: Spontaneous
  Country: JP (occurrence: JP)
  Receive Date: 20210322
  Receipt Date: 20210630
  Transmission Date: 20210717
  Serious: Yes (Death, Life-Threatening, Hospitalization, Other)
  Sender: FDA-Public Use
  Company Number: JP-ROCHE-2741364

PATIENT
  Age: 37 Year
  Sex: Female
  Weight: 38 kg

DRUGS (7)
  1. OXYCODONE [Suspect]
     Active Substance: OXYCODONE
     Indication: PRODUCT USED FOR UNKNOWN INDICATION
     Route: 048
     Dates: start: 20200813
  2. NARURAPID [Concomitant]
     Active Substance: HYDROMORPHONE HYDROCHLORIDE
     Route: 048
     Dates: start: 20201030
  3. IRINOTECAN HYDROCHLORIDE HYDRATE [Concomitant]
     Active Substance: IRINOTECAN HYDROCHLORIDE
     Indication: CERVIX CARCINOMA
     Route: 041
     Dates: start: 20200612, end: 20200730
  4. AVASTIN [Suspect]
     Active Substance: BEVACIZUMAB
     Dosage: MOST RECENT DOSE IN 2020.
     Route: 041
     Dates: start: 20200820, end: 20201001
  5. CARBOPLATIN. [Suspect]
     Active Substance: CARBOPLATIN
     Indication: CERVIX CARCINOMA
     Dosage: MOST RECENT DOSE IN 2020.
     Route: 041
     Dates: start: 2020
  6. AVASTIN [Suspect]
     Active Substance: BEVACIZUMAB
     Indication: CERVIX CARCINOMA
     Dosage: MOST RECENT DOSE IN 2020.
     Route: 041
     Dates: start: 20200612, end: 20200710
  7. PACLITAXEL. [Suspect]
     Active Substance: PACLITAXEL
     Indication: CERVIX CARCINOMA
     Dosage: MOST RECENT DOSE IN 2020.
     Route: 041
     Dates: start: 2020

REACTIONS (5)
  - Renal abscess [Recovering/Resolving]
  - Intestinal perforation [Not Recovered/Not Resolved]
  - Ileus [Unknown]
  - Cervix carcinoma [Fatal]
  - Pelvic abscess [Not Recovered/Not Resolved]

NARRATIVE: CASE EVENT DATE: 20201021
